FAERS Safety Report 4533513-2 (Version None)
Quarter: 2004Q4

REPORT INFORMATION
  Report Type: 
  Country: None (occurrence: None)
  Receive Date: 20041206
  Receipt Date: 20040910
  Transmission Date: 20050328
  Serious: No
  Sender: FDA-Public Use
  Company Number: USA040978022

PATIENT
  Age: 72 Year
  Sex: Female
  Weight: 60 kg

DRUGS (8)
  1. CYMBALTA [Suspect]
     Indication: SLEEP DISORDER
     Dosage: 60 MG AT BEDTIME
     Dates: start: 20040826, end: 20040826
  2. THYROID TAB [Concomitant]
  3. FOSAMAX [Concomitant]
  4. MOBIC [Concomitant]
  5. FLUOXETINE [Concomitant]
  6. TRAZADONE (TRAZODONE) [Concomitant]
  7. GUAIFENEX [Concomitant]
  8. DARVOCET-N 100 [Concomitant]

REACTIONS (3)
  - ENERGY INCREASED [None]
  - INSOMNIA [None]
  - VERTIGO [None]
